FAERS Safety Report 10187076 (Version 1)
Quarter: 2014Q2

REPORT INFORMATION
  Report Type: Spontaneous
  Country: US (occurrence: US)
  Receive Date: 20140522
  Receipt Date: 20140522
  Transmission Date: 20141212
  Serious: Yes (Death, Hospitalization)
  Sender: FDA-Public Use
  Company Number: US-ROCHE-1404778

PATIENT
  Age: 66 Year
  Sex: Female

DRUGS (1)
  1. XELODA [Suspect]
     Indication: OESOPHAGEAL CARCINOMA
     Dosage: 4 TABLETS TWICE A DAY FOR 7 DAYS ON 7 DAYS OFF
     Route: 048
     Dates: start: 20140429

REACTIONS (2)
  - Dehydration [Fatal]
  - Renal failure [Fatal]
